FAERS Safety Report 7263087-7 (Version None)
Quarter: 2011Q1

REPORT INFORMATION
  Report Type: 
  Country: None (occurrence: None)
  Receive Date: 20110130
  Receipt Date: 20101001
  Transmission Date: 20110831
  Serious: No
  Sender: FDA-Public Use
  Company Number: US-ABBOTT-10P-163-0675684-00

PATIENT
  Sex: Male
  Weight: 93.07 kg

DRUGS (6)
  1. SKELAXIN [Concomitant]
     Indication: ANKYLOSING SPONDYLITIS
     Dosage: UNKNOWN STRENGTH
     Route: 048
  2. VICODIN [Concomitant]
     Indication: BACK PAIN
     Dosage: 7.5/500
     Route: 048
  3. FLEXERIL [Concomitant]
     Indication: BACK PAIN
     Route: 048
  4. VITAMIN D [Concomitant]
     Indication: VITAMIN D DEFICIENCY
     Route: 048
     Dates: start: 20090101
  5. HUMIRA [Suspect]
     Route: 058
     Dates: start: 20070901, end: 20080201
  6. HUMIRA [Suspect]
     Indication: ANKYLOSING SPONDYLITIS
     Route: 058
     Dates: start: 20080201

REACTIONS (10)
  - VITAMIN D DEFICIENCY [None]
  - OSTEOPOROSIS [None]
  - INTERVERTEBRAL DISC DEGENERATION [None]
  - DRUG INEFFECTIVE [None]
  - BACK PAIN [None]
  - SPINAL COLUMN STENOSIS [None]
  - INTERVERTEBRAL DISC PROTRUSION [None]
  - NECK PAIN [None]
  - MUSCULOSKELETAL STIFFNESS [None]
  - SCOLIOSIS [None]
